FAERS Safety Report 6993070-8 (Version None)
Quarter: 2010Q3

REPORT INFORMATION
  Report Type: 
  Country: None (occurrence: None)
  Receive Date: 20100917
  Receipt Date: 20100104
  Transmission Date: 20110219
  Serious: Yes (Other)
  Sender: FDA-Public Use
  Company Number: US-ASTRAZENECA-2009SE22856

PATIENT
  Age: 50 Year
  Sex: Male
  Weight: 95.3 kg

DRUGS (9)
  1. SEROQUEL [Suspect]
     Indication: MENTAL DISORDER
     Route: 048
     Dates: start: 20000101, end: 20080101
  2. SEROQUEL [Suspect]
     Indication: DEPRESSION
     Route: 048
     Dates: start: 20000101, end: 20080101
  3. SEROQUEL [Suspect]
     Indication: ANXIETY
     Route: 048
     Dates: start: 20000101, end: 20080101
  4. SEROQUEL [Suspect]
     Route: 048
     Dates: start: 20060901, end: 20070401
  5. SEROQUEL [Suspect]
     Route: 048
     Dates: start: 20060901, end: 20070401
  6. SEROQUEL [Suspect]
     Route: 048
     Dates: start: 20060901, end: 20070401
  7. RISPERDAL [Concomitant]
     Dates: start: 20060901, end: 20061101
  8. ZYPREXA [Concomitant]
     Dates: start: 20050101
  9. ZYPREXA [Concomitant]
     Dates: start: 20040701, end: 20050301

REACTIONS (9)
  - BLOOD TRIGLYCERIDES INCREASED [None]
  - DRUG INEFFECTIVE [None]
  - INSOMNIA [None]
  - MENTAL DISORDER [None]
  - OVERWEIGHT [None]
  - PANCREATITIS [None]
  - RESTLESSNESS [None]
  - SCHIZOPHRENIA [None]
  - TYPE 2 DIABETES MELLITUS [None]
